FAERS Safety Report 24748934 (Version 4)
Quarter: 2025Q4

REPORT INFORMATION
  Report Type: Report from Study
  Country: US (occurrence: US)
  Receive Date: 20241218
  Receipt Date: 20251214
  Transmission Date: 20260117
  Serious: Yes (Other)
  Sender: ABBVIE
  Company Number: US-ABBVIE-5805636

PATIENT
  Age: 61 Year
  Sex: Female
  Weight: 126 kg

DRUGS (6)
  1. SKYRIZI [Suspect]
     Active Substance: RISANKIZUMAB-RZAA
     Indication: Psoriasis
     Dosage: FORM STRENGTH: 150 MILLIGRAM
     Route: 058
     Dates: start: 20231127
  2. POTASSIUM [Concomitant]
     Active Substance: POTASSIUM
     Indication: Product used for unknown indication
  3. ATORVASTATIN [Concomitant]
     Active Substance: ATORVASTATIN
     Indication: Blood cholesterol
  4. MAGNESIUM [Concomitant]
     Active Substance: MAGNESIUM
     Indication: Product used for unknown indication
  5. LEVOTHYROXINE [Concomitant]
     Active Substance: LEVOTHYROXINE
     Indication: Hypothyroidism
  6. LISINOPRIL [Suspect]
     Active Substance: LISINOPRIL
     Indication: Product used for unknown indication
     Route: 065

REACTIONS (19)
  - Compression fracture [Recovering/Resolving]
  - Weight decreased [Recovered/Resolved]
  - Weight increased [Recovering/Resolving]
  - Glycosylated haemoglobin increased [Recovered/Resolved]
  - Back pain [Recovering/Resolving]
  - Arthralgia [Recovering/Resolving]
  - Hypoaesthesia [Recovered/Resolved]
  - Sinusitis [Recovered/Resolved]
  - Paraesthesia [Recovering/Resolving]
  - Exostosis [Recovered/Resolved]
  - Arthritis [Not Recovered/Not Resolved]
  - Muscle strain [Unknown]
  - COVID-19 [Recovered/Resolved]
  - Laryngitis [Recovered/Resolved]
  - Cervical radiculopathy [Recovered/Resolved]
  - Limb discomfort [Unknown]
  - Ageusia [Not Recovered/Not Resolved]
  - Anosmia [Not Recovered/Not Resolved]
  - Diabetes mellitus [Recovered/Resolved]

NARRATIVE: CASE EVENT DATE: 20231201
